FAERS Safety Report 4389941-1 (Version None)
Quarter: 2004Q2

REPORT INFORMATION
  Report Type: 
  Country: None (occurrence: None)
  Receive Date: 20040630
  Receipt Date: 20040616
  Transmission Date: 20050107
  Serious: Yes (Hospitalization)
  Sender: FDA-Public Use
  Company Number: 2004AP03133

PATIENT
  Age: 66 Year
  Sex: Female
  Weight: 56 kg

DRUGS (5)
  1. OMEPRAL [Suspect]
     Indication: REFLUX OESOPHAGITIS
     Dosage: 20 MG DAILY PO
     Route: 048
     Dates: start: 20010728, end: 20021209
  2. URSOSAN [Concomitant]
  3. BUTYLMIN [Concomitant]
  4. NEOPHAGEN [Concomitant]
  5. EURAX [Concomitant]

REACTIONS (6)
  - FALL [None]
  - FEMUR FRACTURE [None]
  - HAEMOPTYSIS [None]
  - PRURITUS [None]
  - ROAD TRAFFIC ACCIDENT [None]
  - SPUTUM ABNORMAL [None]
